FAERS Safety Report 7274742-7 (Version None)
Quarter: 2011Q1

REPORT INFORMATION
  Report Type: 
  Country: None (occurrence: None)
  Receive Date: 20110128
  Receipt Date: 20110120
  Transmission Date: 20110831
  Serious: Yes (Other)
  Sender: FDA-Public Use
  Company Number: VAL_00522_2011

PATIENT
  Age: 27 Year
  Sex: Male

DRUGS (2)
  1. CARBAMAZEPINE [Suspect]
     Indication: MOOD ALTERED
     Dosage: (DF)
  2. LITHIUM CARBONATE [Suspect]
     Indication: MOOD ALTERED
     Dosage: (DF)

REACTIONS (4)
  - PALATAL DISORDER [None]
  - TREMOR [None]
  - TARDIVE DYSKINESIA [None]
  - TONGUE DISORDER [None]
